FAERS Safety Report 16131529 (Version 1)
Quarter: 2019Q1

REPORT INFORMATION
  Report Type: Spontaneous
  Country: US (occurrence: US)
  Receive Date: 20190328
  Receipt Date: 20190328
  Transmission Date: 20190418
  Serious: Yes (Life-Threatening, Hospitalization, Other)
  Sender: FDA-Public Use
  Company Number: US-AMGEN-USASP2019048828

PATIENT
  Sex: Female

DRUGS (1)
  1. PROCRIT [Suspect]
     Active Substance: ERYTHROPOIETIN
     Indication: ANAEMIA
     Dosage: 10000 UNIT, 3 TIMES/WK, MONDAY, WEDNESDAY, AND FRIDAY
     Route: 058
     Dates: end: 2019

REACTIONS (6)
  - Anaemia [Unknown]
  - Sinus tachycardia [Unknown]
  - Product dose omission [Unknown]
  - Fall [Unknown]
  - Asthenia [Unknown]
  - Platelet count decreased [Unknown]

NARRATIVE: CASE EVENT DATE: 20181012
